FAERS Safety Report 18053260 (Version 2)
Quarter: 2020Q3

REPORT INFORMATION
  Report Type: Spontaneous
  Country: US (occurrence: US)
  Receive Date: 20200722
  Receipt Date: 20200731
  Transmission Date: 20201103
  Serious: Yes (Other)
  Sender: FDA-Public Use
  Company Number: US-BAUSCH-BL-2020-020133

PATIENT
  Age: 7 Decade
  Sex: Female

DRUGS (3)
  1. LACRISERT [Suspect]
     Active Substance: HYDROXYPROPYL CELLULOSE
     Route: 047
     Dates: start: 2020
  2. LACRISERT [Suspect]
     Active Substance: HYDROXYPROPYL CELLULOSE
     Indication: DRY EYE
     Dosage: 1 INSERT IN EACH EYE?2 TO 3 TIMES IN THE LAST 1.5 YEARS RUNNING OUT OF LACRISERT
     Route: 047
     Dates: start: 1984, end: 202005
  3. TRELEGY ELLIPTA [Concomitant]
     Active Substance: FLUTICASONE FUROATE\UMECLIDINIUM BROMIDE\VILANTEROL TRIFENATATE
     Indication: PRODUCT USED FOR UNKNOWN INDICATION
     Route: 048
     Dates: start: 202001

REACTIONS (8)
  - Sinus disorder [Unknown]
  - Symptom recurrence [Not Recovered/Not Resolved]
  - Therapy interrupted [Unknown]
  - Cataract [Not Recovered/Not Resolved]
  - Dyspnoea [Unknown]
  - Allergy to animal [Unknown]
  - Product supply issue [Unknown]
  - Dry eye [Not Recovered/Not Resolved]

NARRATIVE: CASE EVENT DATE: 202001
